FAERS Safety Report 8819755 (Version 2)
Quarter: 2012Q4

REPORT INFORMATION
  Report Type: 
  Country: US (occurrence: US)
  Receive Date: 20121001
  Receipt Date: 20121023
  Transmission Date: 20130627
  Serious: Yes (Other)
  Sender: FDA-Public Use
  Company Number: US-ELI_LILLY_AND_COMPANY-US201209006227

PATIENT
  Sex: Female

DRUGS (4)
  1. BYETTA [Suspect]
     Indication: TYPE 2 DIABETES MELLITUS
     Dosage: 5 ug, qd
     Route: 058
     Dates: start: 20120823, end: 20120830
  2. BYDUREON [Suspect]
     Indication: TYPE 2 DIABETES MELLITUS
     Dosage: 2 mg, weekly (1/W)
     Route: 058
     Dates: start: 20120830, end: 20120914
  3. HYZAAR [Concomitant]
     Dosage: UNK mg, UNK
  4. ZOCOR [Concomitant]
     Dosage: 20 mg, UNK

REACTIONS (9)
  - Pancreatitis [Recovered/Resolved]
  - Pancreatic enzymes increased [Unknown]
  - Malaise [Unknown]
  - Fatigue [Unknown]
  - Nausea [Unknown]
  - Abdominal pain [Not Recovered/Not Resolved]
  - Hypertriglyceridaemia [Unknown]
  - Lipase increased [Unknown]
  - Weight increased [Recovered/Resolved]
